FAERS Safety Report 6400579-4 (Version None)
Quarter: 2009Q4

REPORT INFORMATION
  Report Type: 
  Country: None (occurrence: None)
  Receive Date: 20091014
  Receipt Date: 20091002
  Transmission Date: 20100525
  Serious: Yes (Hospitalization)
  Sender: FDA-Public Use
  Company Number: US-PFIZER INC-2009257153

PATIENT
  Sex: Male
  Weight: 97.052 kg

DRUGS (18)
  1. BLINDED *NAPROXEN [Suspect]
     Indication: OSTEOARTHRITIS
     Dosage: UNK
     Route: 048
     Dates: start: 20090421
  2. BLINDED *NO SUBJECT DRUG [Suspect]
     Indication: OSTEOARTHRITIS
     Dosage: UNK
     Route: 048
     Dates: start: 20090421
  3. BLINDED *PLACEBO [Suspect]
     Indication: OSTEOARTHRITIS
     Dosage: UNK
     Route: 048
     Dates: start: 20090421
  4. CELECOXIB [Suspect]
     Indication: OSTEOARTHRITIS
     Dosage: UNK
     Route: 048
     Dates: start: 20090421
  5. BLINDED IBUPROFEN [Suspect]
     Indication: OSTEOARTHRITIS
     Dosage: UNK
     Route: 048
     Dates: start: 20090421
  6. BLINDED NAPROXEN [Suspect]
     Dosage: UNK
     Route: 048
     Dates: start: 20090421
  7. NEXIUM [Concomitant]
     Dosage: 20 MG, 1X/DAY
     Route: 048
     Dates: start: 20090508
  8. LISINOPRIL [Concomitant]
     Dosage: 20 MG, 1X/DAY
     Route: 048
  9. NOVOLIN 70/30 [Concomitant]
     Dosage: UNK
     Route: 058
  10. ULTRAM [Concomitant]
     Indication: PAIN
     Dosage: 50 MG, UNK
     Route: 048
  11. TAMSULOSIN HYDROCHLORIDE [Concomitant]
     Dosage: 0.4 MG, 1X/DAY
     Route: 048
  12. MULTIVITAMIN [Concomitant]
     Dosage: 1 TAB, BID
     Route: 048
  13. AVANDIA [Concomitant]
     Dosage: 8 MG, 1X/DAY
     Route: 048
  14. WELLBUTRIN [Concomitant]
     Dosage: 150 MG, 2X/DAY
     Route: 048
  15. COLACE [Concomitant]
     Dosage: 100 MG, 1X/DAY
     Route: 048
  16. MULTI-VITAMINS [Concomitant]
     Dosage: 1 CAPSULE, DAILY
     Route: 048
  17. TYLENOL (CAPLET) [Concomitant]
     Dosage: PRN
     Route: 048
  18. LORATADINE W/PSEUDOEPHEDRINE [Concomitant]
     Dosage: 300 MG, 1X/DAY
     Route: 048

REACTIONS (3)
  - HYPOGLYCAEMIA [None]
  - PROSTATOMEGALY [None]
  - UROSEPSIS [None]
